FAERS Safety Report 9445995 (Version 4)
Quarter: 2014Q1

REPORT INFORMATION
  Report Type: Spontaneous
  Country: US (occurrence: US)
  Receive Date: 20130807
  Receipt Date: 20140207
  Transmission Date: 20141002
  Serious: Yes (Hospitalization)
  Sender: FDA-Public Use
  Company Number: US-CELGENEUS-163-POMAL-13073914

PATIENT
  Age: 90 Year
  Sex: Male
  Weight: 95.79 kg

DRUGS (21)
  1. POMALYST [Suspect]
     Indication: PLASMA CELL MYELOMA
     Dosage: 2 MILLIGRAM
     Route: 048
     Dates: start: 20130630, end: 20130719
  2. POMALYST [Suspect]
     Dosage: 1 MILLIGRAM
     Route: 048
     Dates: start: 201309, end: 2013
  3. POMALYST [Suspect]
     Dosage: 2 MILLIGRAM
     Route: 048
     Dates: start: 201311, end: 2013
  4. DECADRON [Concomitant]
     Indication: PLASMA CELL MYELOMA
     Route: 048
     Dates: start: 20121101, end: 20130730
  5. DECADRON [Concomitant]
     Route: 048
     Dates: start: 20130221, end: 20130613
  6. DECADRON [Concomitant]
     Route: 048
     Dates: start: 20130613
  7. DECADRON [Concomitant]
     Route: 048
     Dates: start: 20130627, end: 20130730
  8. PROCRIT [Concomitant]
     Indication: PROSTATE CANCER
     Route: 058
     Dates: start: 20121018, end: 20121025
  9. PROCRIT [Concomitant]
     Indication: NEPHROGENIC ANAEMIA
     Route: 058
     Dates: start: 20121101, end: 20130108
  10. PROCRIT [Concomitant]
     Indication: RENAL FAILURE CHRONIC
     Route: 058
     Dates: start: 20130121, end: 20130221
  11. PROCRIT [Concomitant]
     Route: 058
     Dates: start: 20130221, end: 20130805
  12. PROCRIT [Concomitant]
     Route: 058
     Dates: start: 20130808
  13. VELCADE [Concomitant]
     Indication: PLASMA CELL MYELOMA
     Route: 058
     Dates: start: 20130221, end: 20130613
  14. LUPRON DEPOT [Concomitant]
     Indication: PRODUCT USED FOR UNKNOWN INDICATION
     Route: 065
     Dates: start: 20130228
  15. AMBIEN [Concomitant]
     Indication: PRODUCT USED FOR UNKNOWN INDICATION
     Dosage: 1/2 - 1
     Route: 048
     Dates: start: 20121210
  16. ASPIRINE [Concomitant]
     Indication: PRODUCT USED FOR UNKNOWN INDICATION
     Dosage: 81 MILLIGRAM
     Route: 048
     Dates: start: 20121101
  17. CASODEX [Concomitant]
     Indication: PRODUCT USED FOR UNKNOWN INDICATION
     Dosage: 50 MILLIGRAM
     Route: 048
     Dates: start: 20130430
  18. FLOMAX [Concomitant]
     Indication: PRODUCT USED FOR UNKNOWN INDICATION
     Dosage: .8 MILLIGRAM
     Route: 048
     Dates: start: 20121101
  19. LIDOCAINE VISCOUS [Concomitant]
     Indication: PRODUCT USED FOR UNKNOWN INDICATION
     Route: 048
     Dates: start: 20130718
  20. METOPROLOL SUCCINATE [Concomitant]
     Indication: PRODUCT USED FOR UNKNOWN INDICATION
     Dosage: 25 MILLIGRAM
     Route: 048
     Dates: start: 20130221
  21. PROBIOTIC [Concomitant]
     Indication: PRODUCT USED FOR UNKNOWN INDICATION
     Route: 048

REACTIONS (7)
  - Pancytopenia [Not Recovered/Not Resolved]
  - Dehydration [Not Recovered/Not Resolved]
  - Malaise [Not Recovered/Not Resolved]
  - Febrile neutropenia [Not Recovered/Not Resolved]
  - Bacterial sepsis [Recovered/Resolved]
  - Diarrhoea [Not Recovered/Not Resolved]
  - Decreased appetite [Not Recovered/Not Resolved]
